FAERS Safety Report 7122100-8 (Version None)
Quarter: 2010Q4

REPORT INFORMATION
  Report Type: 
  Country: None (occurrence: None)
  Receive Date: 20101122
  Receipt Date: 20101122
  Transmission Date: 20110411
  Serious: Yes (Hospitalization)
  Sender: FDA-Public Use
  Company Number: None

PATIENT
  Sex: Male
  Weight: 79.2 kg

DRUGS (8)
  1. PEG-L-ASPARAGINASE (PEGASPARGASE, ONCOSPAR) [Suspect]
     Dosage: 9850 MG
     Dates: end: 20100831
  2. THIOGUANINE [Suspect]
     Dosage: 1600 MG
     Dates: end: 20100830
  3. VINCRISTINE SULFATE [Suspect]
     Dosage: 10 MG
     Dates: end: 20100907
  4. CYCLOPHOSPHAMIDE [Suspect]
     Dosage: 1980 MG
     Dates: end: 20100817
  5. CYTARABINE [Suspect]
     Dosage: 1184 MG
     Dates: end: 20100827
  6. DEXAMETHASONE [Suspect]
     Dosage: 280 MG
     Dates: end: 20100809
  7. DOXORUBICIN HCL [Suspect]
     Dosage: 147 MG
     Dates: end: 20100803
  8. METHOTREXATE [Suspect]
     Dosage: 45 MG
     Dates: end: 20100824

REACTIONS (1)
  - ARTHRALGIA [None]
